FAERS Safety Report 6618836-5 (Version None)
Quarter: 2010Q1

REPORT INFORMATION
  Report Type: 
  Country: None (occurrence: None)
  Receive Date: 20100305
  Receipt Date: 20100305
  Transmission Date: 20100710
  Serious: Yes (Hospitalization)
  Sender: FDA-Public Use
  Company Number: None

PATIENT
  Age: 83 Year
  Sex: Female

DRUGS (12)
  1. ORENCIA [Suspect]
     Indication: RHEUMATOID ARTHRITIS
     Dosage: 250MG MONTHLY IV DRIP, INFUSED OVER 30 MIN
     Route: 041
     Dates: start: 20100219, end: 20100219
  2. VICODIN PRN [Concomitant]
  3. ACETAMINOPHEN PRN [Concomitant]
  4. OMEPRAZOLE [Concomitant]
  5. ALLOPURINOL [Concomitant]
  6. TUMS [Concomitant]
  7. DEXAMETHASONE [Concomitant]
  8. FOLIC ACID [Concomitant]
  9. LIDODERM [Concomitant]
  10. LYRICA [Concomitant]
  11. M.V.I. [Concomitant]
  12. SULFASALAZINE [Concomitant]

REACTIONS (1)
  - HYPOTENSION [None]
